FAERS Safety Report 6803733-2 (Version None)
Quarter: 2010Q2

REPORT INFORMATION
  Report Type: 
  Country: None (occurrence: None)
  Receive Date: 20100628
  Receipt Date: 20100615
  Transmission Date: 20101027
  Serious: Yes (Other)
  Sender: FDA-Public Use
  Company Number: CH-ELI_LILLY_AND_COMPANY-CH201006002352

PATIENT
  Age: 52 Year
  Sex: Male
  Weight: 97.3 kg

DRUGS (1)
  1. BYETTA [Suspect]
     Indication: PANCREATIC ENZYMES INCREASED
     Dosage: 10 UG, 2/D
     Route: 058
     Dates: start: 20090820, end: 20100217

REACTIONS (2)
  - OFF LABEL USE [None]
  - PANCREATITIS [None]
